FAERS Safety Report 11832257 (Version 5)
Quarter: 2017Q1

REPORT INFORMATION
  Report Type: Report from Study
  Country: US (occurrence: US)
  Receive Date: 20151214
  Receipt Date: 20170130
  Transmission Date: 20170428
  Serious: Yes (Hospitalization, Other)
  Sender: FDA-Public Use
  Company Number: US-SA-2015SA142132

PATIENT
  Age: 27 Year
  Sex: Female

DRUGS (2)
  1. LEMTRADA [Suspect]
     Active Substance: ALEMTUZUMAB
     Indication: MULTIPLE SCLEROSIS
     Route: 041
     Dates: start: 20150824, end: 20150828
  2. LEMTRADA [Suspect]
     Active Substance: ALEMTUZUMAB
     Indication: MULTIPLE SCLEROSIS
     Route: 041
     Dates: start: 20160913, end: 20160915

REACTIONS (15)
  - Malaise [Unknown]
  - Ill-defined disorder [Unknown]
  - Pain in extremity [Unknown]
  - Hospitalisation [Unknown]
  - Nausea [Recovering/Resolving]
  - Insomnia [Unknown]
  - Appetite disorder [Recovering/Resolving]
  - Weight decreased [Recovering/Resolving]
  - Kidney infection [Recovered/Resolved]
  - Chromaturia [Recovered/Resolved]
  - Psychotic disorder [Not Recovered/Not Resolved]
  - Intestinal obstruction [Unknown]
  - Muscle spasms [Not Recovered/Not Resolved]
  - Vomiting [Recovered/Resolved]
  - Fatigue [Not Recovered/Not Resolved]

NARRATIVE: CASE EVENT DATE: 2015
